FAERS Safety Report 5369017-7 (Version None)
Quarter: 2007Q2

REPORT INFORMATION
  Report Type: 
  Country: None (occurrence: None)
  Receive Date: 20070625
  Receipt Date: 20061116
  Transmission Date: 20071010
  Serious: No
  Sender: FDA-Public Use
  Company Number: US-ASTRAZENECA-2006UW24417

PATIENT
  Age: 44 Year
  Sex: Female
  Weight: 71.7 kg

DRUGS (4)
  1. CRESTOR [Suspect]
     Indication: BLOOD CHOLESTEROL INCREASED
     Route: 048
  2. ATENOLOL [Concomitant]
  3. REMICAIDE [Concomitant]
  4. NEXIUM [Concomitant]

REACTIONS (1)
  - THROAT TIGHTNESS [None]
